FAERS Safety Report 11251688 (Version 1)
Quarter: 2015Q3

REPORT INFORMATION
  Report Type: Spontaneous
  Country: US (occurrence: US)
  Receive Date: 20150708
  Receipt Date: 20150708
  Transmission Date: 20151125
  Serious: No
  Sender: FDA-Public Use
  Company Number: US-ELI_LILLY_AND_COMPANY-US201205010687

PATIENT
  Age: 45 Year

DRUGS (2)
  1. ALIMTA [Suspect]
     Active Substance: PEMETREXED DISODIUM
     Indication: NON-SMALL CELL LUNG CANCER STAGE IV
     Dosage: UNK UNK, EVERY 21 DAYS
     Dates: start: 201112
  2. CARBOPLATIN. [Concomitant]
     Active Substance: CARBOPLATIN
     Dosage: UNK, EVERY 21 DAYS

REACTIONS (4)
  - Malaise [Unknown]
  - Gastrointestinal injury [Unknown]
  - Pain [Unknown]
  - Depressed mood [Unknown]
